APPROVED DRUG PRODUCT: LAMOTRIGINE
Active Ingredient: LAMOTRIGINE
Strength: 300MG
Dosage Form/Route: TABLET, EXTENDED RELEASE;ORAL
Application: A202383 | Product #005 | TE Code: AB
Applicant: DR REDDYS LABORATORIES LTD
Approved: Jun 19, 2013 | RLD: No | RS: No | Type: RX